FAERS Safety Report 20404166 (Version 1)
Quarter: 2022Q1

REPORT INFORMATION
  Report Type: Spontaneous
  Country: AT (occurrence: AT)
  Receive Date: 20220131
  Receipt Date: 20220131
  Transmission Date: 20220423
  Serious: Yes (Other)
  Sender: FDA-Public Use
  Company Number: AT-002147023-NVSC2022AT013512

PATIENT
  Age: 73 Year
  Sex: Male

DRUGS (7)
  1. NINTEDANIB [Suspect]
     Active Substance: NINTEDANIB
     Indication: Non-small cell lung cancer
     Route: 065
     Dates: start: 201505
  2. OLAPARIB [Suspect]
     Active Substance: OLAPARIB
     Indication: Non-small cell lung cancer
     Route: 065
     Dates: end: 202101
  3. NIVOLUMAB [Suspect]
     Active Substance: NIVOLUMAB
     Indication: Non-small cell lung cancer
     Route: 065
     Dates: start: 201506, end: 201810
  4. PEMETREXED [Suspect]
     Active Substance: PEMETREXED
     Indication: Non-small cell lung cancer
     Route: 065
     Dates: start: 201501
  5. CISPLATIN [Suspect]
     Active Substance: CISPLATIN
     Indication: Non-small cell lung cancer
     Route: 065
     Dates: start: 201501
  6. DOCETAXEL [Suspect]
     Active Substance: DOCETAXEL
     Indication: Non-small cell lung cancer
     Route: 065
     Dates: start: 201505
  7. DURVALUMAB [Suspect]
     Active Substance: DURVALUMAB
     Indication: Non-small cell lung cancer
     Route: 065
     Dates: end: 202101

REACTIONS (4)
  - Malignant neoplasm progression [Unknown]
  - Non-small cell lung cancer [Unknown]
  - Pleural effusion [Unknown]
  - Dyspnoea [Unknown]

NARRATIVE: CASE EVENT DATE: 20210201
